FAERS Safety Report 9401290 (Version 1)
Quarter: 2013Q3

REPORT INFORMATION
  Report Type: Report from Study
  Country: AU (occurrence: AU)
  Receive Date: 20130715
  Receipt Date: 20130715
  Transmission Date: 20140515
  Serious: Yes (Hospitalization)
  Sender: FDA-Public Use
  Company Number: AU-BAYER-2013-084909

PATIENT
  Age: 70 Year
  Sex: Male
  Weight: 51 kg

DRUGS (3)
  1. REGORAFENIB [Suspect]
     Indication: GASTROOESOPHAGEAL CANCER
     Dosage: 40 MG, QID
     Route: 048
     Dates: start: 20130211, end: 20130415
  2. CLEXANE [Concomitant]
     Indication: PROPHYLAXIS
     Dosage: 40 MG, QD
     Dates: start: 20130417, end: 20130424
  3. NICOTINE [Concomitant]
     Dosage: 1, ONCE A DAY
     Route: 062
     Dates: start: 20130418, end: 20130422

REACTIONS (3)
  - Mucosal inflammation [Recovered/Resolved]
  - Dysphagia [None]
  - Decreased appetite [Recovered/Resolved with Sequelae]
